FAERS Safety Report 7771135-0 (Version None)
Quarter: 2011Q3

REPORT INFORMATION
  Report Type: 
  Country: None (occurrence: None)
  Receive Date: 20110922
  Receipt Date: 20110907
  Transmission Date: 20111222
  Serious: No
  Sender: FDA-Public Use
  Company Number: US-B.I. PHARMACEUTICALS,INC./RIDGEFIELD-2011-BP-21646BP

PATIENT
  Sex: Male

DRUGS (2)
  1. COMBIVENT [Suspect]
     Indication: PRODUCT USED FOR UNKNOWN INDICATION
  2. ASMANEX TWISTHALER [Suspect]
     Indication: ASTHMA
     Dates: start: 20060101, end: 20110601

REACTIONS (1)
  - RESPIRATORY TRACT CONGESTION [None]
